FAERS Safety Report 23843511 (Version 4)
Quarter: 2024Q3

REPORT INFORMATION
  Report Type: Report from Study
  Country: DE (occurrence: DE)
  Receive Date: 20240510
  Receipt Date: 20240820
  Transmission Date: 20241017
  Serious: Yes (Death)
  Sender: SANOFI AVENTIS
  Company Number: DE-SA-SAC20240215000982

PATIENT
  Age: 84 Year
  Sex: Female

DRUGS (65)
  1. ISATUXIMAB [Suspect]
     Active Substance: ISATUXIMAB
     Indication: Plasma cell myeloma refractory
     Dosage: 690 MG, QW
     Dates: start: 20230426, end: 20230517
  2. ISATUXIMAB [Suspect]
     Active Substance: ISATUXIMAB
     Dosage: 690 MG, BIW
     Dates: start: 20230524, end: 20230607
  3. ISATUXIMAB [Suspect]
     Active Substance: ISATUXIMAB
     Dosage: 690 MG, BIW
     Dates: start: 20230621, end: 20230705
  4. ISATUXIMAB [Suspect]
     Active Substance: ISATUXIMAB
     Dosage: 690 MG, BIW
     Dates: start: 20230719, end: 20230802
  5. ISATUXIMAB [Suspect]
     Active Substance: ISATUXIMAB
     Dosage: 690 MG, BIW
     Dates: start: 20230816, end: 20230830
  6. ISATUXIMAB [Suspect]
     Active Substance: ISATUXIMAB
     Dosage: 690 MG, BIW
     Dates: start: 20230913, end: 20230927
  7. ISATUXIMAB [Suspect]
     Active Substance: ISATUXIMAB
     Dosage: 690 MG, BIW
     Dates: start: 20231011, end: 20231011
  8. ISATUXIMAB [Suspect]
     Active Substance: ISATUXIMAB
     Dosage: 690 MG, BIW
     Dates: start: 20231108, end: 20231122
  9. ISATUXIMAB [Suspect]
     Active Substance: ISATUXIMAB
     Dosage: 690 MG, BIW
     Dates: start: 20231206, end: 20231206
  10. ISATUXIMAB [Suspect]
     Active Substance: ISATUXIMAB
     Dosage: 690 MG, BIW
     Dates: start: 20240103, end: 20240117
  11. ISATUXIMAB [Suspect]
     Active Substance: ISATUXIMAB
     Dosage: 690 MG, BIW
     Dates: start: 20240131, end: 20240206
  12. ISATUXIMAB [Suspect]
     Active Substance: ISATUXIMAB
     Dosage: 690 MG, BIW
     Dates: start: 20240214, end: 20240215
  13. ISATUXIMAB [Suspect]
     Active Substance: ISATUXIMAB
     Dosage: 690 MG, BIW
     Dates: start: 20240228, end: 20240313
  14. ISATUXIMAB [Suspect]
     Active Substance: ISATUXIMAB
     Dosage: 690 MG, BIW
     Dates: start: 20240327, end: 20240411
  15. DEXAMETHASONE [Suspect]
     Active Substance: DEXAMETHASONE
     Indication: Plasma cell myeloma refractory
     Dosage: 20 MG
     Dates: start: 20230426, end: 20230511
  16. DEXAMETHASONE [Suspect]
     Active Substance: DEXAMETHASONE
     Dosage: 20 MG
     Dates: start: 20230524, end: 20230608
  17. DEXAMETHASONE [Suspect]
     Active Substance: DEXAMETHASONE
     Dosage: 20 MG
     Dates: start: 20230621, end: 20230713
  18. DEXAMETHASONE [Suspect]
     Active Substance: DEXAMETHASONE
     Dosage: 20 MG
     Dates: start: 20230719, end: 20230810
  19. DEXAMETHASONE [Suspect]
     Active Substance: DEXAMETHASONE
     Dosage: 20 MG
     Dates: start: 20230816, end: 20230831
  20. DEXAMETHASONE [Suspect]
     Active Substance: DEXAMETHASONE
     Dosage: 8 MG
     Dates: start: 20230913, end: 20230928
  21. DEXAMETHASONE [Suspect]
     Active Substance: DEXAMETHASONE
     Dosage: 8 MG
     Dates: start: 20231011, end: 20231019
  22. DEXAMETHASONE [Suspect]
     Active Substance: DEXAMETHASONE
     Dosage: 8 MG
     Dates: start: 20231108, end: 20231123
  23. DEXAMETHASONE [Suspect]
     Active Substance: DEXAMETHASONE
     Dosage: 8 MG
     Dates: start: 20231206, end: 20231215
  24. DEXAMETHASONE [Suspect]
     Active Substance: DEXAMETHASONE
     Dosage: 8 MG
     Dates: start: 20240103, end: 20240118
  25. DEXAMETHASONE [Suspect]
     Active Substance: DEXAMETHASONE
     Dosage: 8 MG
     Dates: start: 20240131, end: 20240206
  26. DEXAMETHASONE [Suspect]
     Active Substance: DEXAMETHASONE
     Dosage: 8 MG
     Dates: start: 20240214, end: 20240215
  27. DEXAMETHASONE [Suspect]
     Active Substance: DEXAMETHASONE
     Dosage: 8 MG
     Dates: start: 20240228, end: 20240314
  28. DEXAMETHASONE [Suspect]
     Active Substance: DEXAMETHASONE
     Dosage: 8 MG
     Dates: start: 20240327, end: 20240411
  29. DEXAMETHASONE [Suspect]
     Active Substance: DEXAMETHASONE
     Dosage: 8 MG
     Dates: start: 20240424
  30. CARFILZOMIB [Suspect]
     Active Substance: CARFILZOMIB
     Indication: Plasma cell myeloma refractory
     Dosage: 34 MG
     Dates: start: 20230426, end: 20230427
  31. CARFILZOMIB [Suspect]
     Active Substance: CARFILZOMIB
     Dosage: 96 MG
     Dates: start: 20230503, end: 20230511
  32. CARFILZOMIB [Suspect]
     Active Substance: CARFILZOMIB
     Dosage: 96 MG
     Dates: start: 20230524, end: 20230608
  33. CARFILZOMIB [Suspect]
     Active Substance: CARFILZOMIB
     Dosage: 96 MG
     Dates: start: 20230621, end: 20230706
  34. CARFILZOMIB [Suspect]
     Active Substance: CARFILZOMIB
     Dosage: 96 MG
     Dates: start: 20230719, end: 20230803
  35. CARFILZOMIB [Suspect]
     Active Substance: CARFILZOMIB
     Dosage: 96 MG
     Dates: start: 20230816, end: 20230831
  36. CARFILZOMIB [Suspect]
     Active Substance: CARFILZOMIB
     Dosage: 96 MG
     Dates: start: 20230816, end: 20230831
  37. CARFILZOMIB [Suspect]
     Active Substance: CARFILZOMIB
     Dosage: 96 MG
     Dates: start: 20230913, end: 20230928
  38. CARFILZOMIB [Suspect]
     Active Substance: CARFILZOMIB
     Dosage: 96 MG
     Dates: start: 20231011, end: 20231019
  39. CARFILZOMIB [Suspect]
     Active Substance: CARFILZOMIB
     Dosage: 96 MG
     Dates: start: 20231108, end: 20231123
  40. CARFILZOMIB [Suspect]
     Active Substance: CARFILZOMIB
     Dosage: 96 MG
     Dates: start: 20231206, end: 20231215
  41. CARFILZOMIB [Suspect]
     Active Substance: CARFILZOMIB
     Dosage: 96 MG
     Dates: start: 20240103, end: 20240118
  42. CARFILZOMIB [Suspect]
     Active Substance: CARFILZOMIB
     Dosage: 96 MG
     Dates: start: 20240131, end: 20240206
  43. CARFILZOMIB [Suspect]
     Active Substance: CARFILZOMIB
     Dosage: 96 MG
     Dates: start: 20240214, end: 20240215
  44. CARFILZOMIB [Suspect]
     Active Substance: CARFILZOMIB
     Dosage: 96 MG
     Dates: start: 20240228, end: 20240314
  45. CARFILZOMIB [Suspect]
     Active Substance: CARFILZOMIB
     Dosage: 96 MG
     Dates: start: 20240311, end: 20240411
  46. CARFILZOMIB [Suspect]
     Active Substance: CARFILZOMIB
     Dosage: 96 MG
     Dates: start: 20240424
  47. AREDIA [Concomitant]
     Active Substance: PAMIDRONATE DISODIUM
     Dosage: UNK
     Dates: start: 20130926
  48. OXYCODONE [Concomitant]
     Active Substance: OXYCODONE
     Indication: Peripheral sensory neuropathy
     Dosage: UNK
     Dates: start: 2013
  49. LYRICA [Concomitant]
     Active Substance: PREGABALIN
     Indication: Peripheral sensory neuropathy
  50. CLEMASTINE [Concomitant]
     Active Substance: CLEMASTINE
     Indication: Prophylaxis
     Dosage: UNK UNK, QCY
     Dates: start: 20230426
  51. MONTELUKAST [Concomitant]
     Active Substance: MONTELUKAST SODIUM
     Indication: Prophylaxis
     Dosage: UNK UNK, QCY
     Dates: start: 20230426
  52. PREDNISOLONE SODIUM SUCCINATE [Concomitant]
     Active Substance: PREDNISOLONE SODIUM SUCCINATE
     Dosage: UNK
     Dates: start: 20230426, end: 20230426
  53. PANTOPRAZOLE [Concomitant]
     Active Substance: PANTOPRAZOLE
     Dosage: UNK
     Dates: start: 20141120
  54. ERYTHROCYTES, CONCENTRATED [Concomitant]
     Dosage: UNK
     Dates: start: 20230601, end: 20230601
  55. ERYTHROCYTES, CONCENTRATED [Concomitant]
     Dosage: UNK
     Dates: start: 20230403, end: 20230403
  56. METOCLOPRAMIDE [Concomitant]
     Active Substance: METOCLOPRAMIDE
     Dosage: UNK
     Dates: start: 20230724
  57. DEXAMETHASONE [Concomitant]
     Active Substance: DEXAMETHASONE
     Dosage: UNK
     Dates: start: 20230724, end: 20230724
  58. MOVICOL [Concomitant]
     Active Substance: POLYETHYLENE GLYCOL 3350\POTASSIUM CHLORIDE\SODIUM BICARBONATE\SODIUM CHLORIDE
     Indication: Constipation
     Dosage: UNK
     Dates: start: 20230831
  59. INSULIN HUMAN [Concomitant]
     Active Substance: INSULIN HUMAN
     Dosage: UNK
     Dates: start: 20230906
  60. LANTUS [Concomitant]
     Active Substance: INSULIN GLARGINE
     Dosage: UNK
     Dates: start: 20230906
  61. METFORMIN [Concomitant]
     Active Substance: METFORMIN HYDROCHLORIDE
     Dosage: UNK
     Dates: start: 20230906
  62. ACETAMINOPHEN [Concomitant]
     Active Substance: ACETAMINOPHEN
     Dosage: UNK
     Dates: start: 20230906
  63. PREGABALIN [Concomitant]
     Active Substance: PREGABALIN
     Indication: Neuropathy peripheral
     Dosage: UNK
     Dates: start: 20230906
  64. RAMIPRIL [Concomitant]
     Active Substance: RAMIPRIL
     Dosage: UNK
     Dates: start: 20230907
  65. DEXTROSE [Concomitant]
     Active Substance: DEXTROSE\DEXTROSE MONOHYDRATE
     Dosage: UNK UNK, QCY
     Dates: start: 20230426

REACTIONS (4)
  - Pneumonia [Fatal]
  - Nasopharyngitis [Recovered/Resolved]
  - Nasopharyngitis [Recovering/Resolving]
  - Atrial fibrillation [Recovered/Resolved]

NARRATIVE: CASE EVENT DATE: 20240206
